FAERS Safety Report 7543700-7 (Version None)
Quarter: 2011Q2

REPORT INFORMATION
  Report Type: 
  Country: None (occurrence: None)
  Receive Date: 20110613
  Receipt Date: 20030924
  Transmission Date: 20111010
  Serious: Yes (Hospitalization)
  Sender: FDA-Public Use
  Company Number: PHHO2003CO12421

PATIENT
  Sex: Female

DRUGS (4)
  1. ZOLEDRONIC ACID [Suspect]
     Route: 042
     Dates: end: 20030801
  2. ZOLEDRONIC ACID [Suspect]
     Route: 042
     Dates: start: 20030925
  3. ZOLEDRONIC ACID [Suspect]
     Indication: METASTASES TO BONE
     Route: 042
     Dates: start: 20030201, end: 20030501
  4. ZOLEDRONIC ACID [Suspect]
     Route: 042
     Dates: end: 20030601

REACTIONS (1)
  - PLEURAL EFFUSION [None]
